FAERS Safety Report 5244164-9 (Version None)
Quarter: 2007Q1

REPORT INFORMATION
  Report Type: 
  Country: None (occurrence: None)
  Receive Date: 20070222
  Receipt Date: 20070216
  Transmission Date: 20070707
  Serious: Yes (Death)
  Sender: FDA-Public Use
  Company Number: US-GLAXOSMITHKLINE-A0559029A

PATIENT
  Age: 18 Year
  Sex: Male
  Weight: 76.4 kg

DRUGS (1)
  1. PAXIL CR [Suspect]
     Indication: DEPRESSION
     Dosage: 12.5MG PER DAY
     Route: 048
     Dates: start: 20030409

REACTIONS (3)
  - AGGRESSION [None]
  - COMPLETED SUICIDE [None]
  - LETHARGY [None]
